FAERS Safety Report 6590781-3 (Version None)
Quarter: 2010Q1

REPORT INFORMATION
  Report Type: 
  Country: None (occurrence: None)
  Receive Date: 20100219
  Receipt Date: 20100209
  Transmission Date: 20100710
  Serious: Yes (Hospitalization, Other)
  Sender: FDA-Public Use
  Company Number: CA-ABBOTT-09P-028-0611686-00

PATIENT
  Sex: Female

DRUGS (12)
  1. HUMIRA [Suspect]
     Indication: RHEUMATOID ARTHRITIS
     Route: 058
     Dates: start: 20091116
  2. NOVO-ATENOL [Concomitant]
     Indication: DRUG USE FOR UNKNOWN INDICATION
  3. CALCIUM W/VITAMIN D [Concomitant]
     Indication: DRUG USE FOR UNKNOWN INDICATION
  4. DIOVAN [Concomitant]
     Indication: DRUG USE FOR UNKNOWN INDICATION
  5. PANTOPRAZOLE [Concomitant]
     Indication: DRUG USE FOR UNKNOWN INDICATION
  6. EVISTA [Concomitant]
     Indication: DRUG USE FOR UNKNOWN INDICATION
  7. APO-CLONIDINE [Concomitant]
     Indication: DRUG USE FOR UNKNOWN INDICATION
  8. LYRICA [Concomitant]
     Indication: DRUG USE FOR UNKNOWN INDICATION
  9. PREDNISONE [Concomitant]
     Indication: DRUG USE FOR UNKNOWN INDICATION
  10. ARAVA [Concomitant]
     Indication: DRUG USE FOR UNKNOWN INDICATION
  11. MIRAPEX [Concomitant]
     Indication: DRUG USE FOR UNKNOWN INDICATION
  12. MORPHINE [Concomitant]
     Indication: DRUG USE FOR UNKNOWN INDICATION

REACTIONS (5)
  - ABDOMINAL ABSCESS [None]
  - ABDOMINAL PAIN [None]
  - DIVERTICULAR PERFORATION [None]
  - INTESTINAL FISTULA [None]
  - PERITONITIS [None]
